FAERS Safety Report 7437332-9 (Version None)
Quarter: 2011Q2

REPORT INFORMATION
  Report Type: 
  Country: None (occurrence: None)
  Receive Date: 20110426
  Receipt Date: 20110422
  Transmission Date: 20111010
  Serious: No
  Sender: FDA-Public Use
  Company Number: US-TEVA-277996USA

PATIENT
  Sex: Female
  Weight: 54.48 kg

DRUGS (3)
  1. ALLEGRA [Concomitant]
     Indication: HYPERSENSITIVITY
     Route: 048
  2. PLAN B ONE-STEP [Suspect]
     Indication: POST COITAL CONTRACEPTION
     Dosage: 1.5 MILLIGRAM;
     Route: 048
     Dates: start: 20110417, end: 20110417
  3. CLONAZEPAM [Concomitant]
     Indication: INSOMNIA
     Dosage: .5 ;
     Route: 048

REACTIONS (3)
  - PELVIC PAIN [None]
  - DYSPEPSIA [None]
  - MENSTRUATION IRREGULAR [None]
